FAERS Safety Report 7795386-4 (Version None)
Quarter: 2011Q4

REPORT INFORMATION
  Report Type: 
  Country: None (occurrence: None)
  Receive Date: 20111004
  Receipt Date: 20110919
  Transmission Date: 20120403
  Serious: Yes (Death)
  Sender: FDA-Public Use
  Company Number: IL-CELGENEUS-082-50794-11091332

PATIENT
  Age: 67 Year
  Sex: Male

DRUGS (1)
  1. VIDAZA [Suspect]
     Route: 065
     Dates: start: 20110202

REACTIONS (2)
  - SEPTIC SHOCK [None]
  - MYELODYSPLASTIC SYNDROME [None]
